FAERS Safety Report 19754408 (Version 7)
Quarter: 2022Q3

REPORT INFORMATION
  Report Type: Report from Study
  Country: FR (occurrence: FR)
  Receive Date: 20210827
  Receipt Date: 20220711
  Transmission Date: 20221027
  Serious: Yes (Hospitalization)
  Sender: FDA-Public Use
  Company Number: FR-JNJFOC-20210635146

PATIENT
  Age: 30 Year
  Sex: Female

DRUGS (3)
  1. SPRAVATO [Suspect]
     Active Substance: ESKETAMINE
     Indication: Depression
     Dosage: 56 MG, 13 TOTAL DOSES
     Dates: start: 20210413, end: 20210607
  2. SPRAVATO [Suspect]
     Active Substance: ESKETAMINE
     Dosage: 84 MG, 12 TOTAL DOSES
     Dates: start: 20210615, end: 20210913
  3. LOXAPINE [Concomitant]
     Active Substance: LOXAPINE
     Indication: Anxiety
     Dosage: OR 5 DROPS
     Route: 065

REACTIONS (8)
  - Mental disorder [Recovered/Resolved]
  - Derealisation [Recovered/Resolved]
  - Paraesthesia [Recovered/Resolved]
  - Anxiety [Recovered/Resolved]
  - Sedation [Recovered/Resolved]
  - Dizziness [Recovered/Resolved]
  - Nausea [Recovered/Resolved]
  - Vomiting [Recovered/Resolved]

NARRATIVE: CASE EVENT DATE: 20210413
